FAERS Safety Report 8740215 (Version 4)
Quarter: 2013Q1

REPORT INFORMATION
  Report Type: Spontaneous
  Country: US (occurrence: US)
  Receive Date: 20120823
  Receipt Date: 20130215
  Transmission Date: 20140127
  Serious: No
  Sender: FDA-Public Use
  Company Number: US-009507513-1208USA001793

PATIENT
  Age: 63 None
  Sex: Female

DRUGS (24)
  1. PEG-INTRON [Suspect]
     Indication: CHRONIC HEPATITIS C
     Dosage: 150 MICROGRAM, QW
     Route: 058
  2. VICTRELIS [Suspect]
     Indication: CHRONIC HEPATITIS C
     Dosage: 800 MG, TID
     Route: 048
  3. RIBAVIRIN [Suspect]
     Indication: CHRONIC HEPATITIS C
  4. RIBASPHERE [Suspect]
  5. ASTELIN (AZELASTINE HYDROCHLORIDE) [Concomitant]
  6. LOSARTAN POTASSIUM [Concomitant]
  7. CLONIDINE [Concomitant]
  8. PREDNISONE (+) THALIDOMIDE [Concomitant]
  9. ALLEGRA [Concomitant]
  10. ISOSORBIDE [Concomitant]
  11. HYDROXYZINE [Concomitant]
  12. SYMBICORT [Concomitant]
  13. LEVOTHYROXINE SODIUM [Concomitant]
  14. BYSTOLIC [Concomitant]
  15. SPIRIVA [Concomitant]
  16. ESTER-C [Concomitant]
  17. PREVACID [Concomitant]
  18. CALCIUM (UNSPECIFIED) [Concomitant]
  19. KRILL OIL [Concomitant]
  20. GLUCOSAMINE [Concomitant]
  21. MAGNESIUM (UNSPECIFIED) [Concomitant]
  22. TYLENOL ARTHRITIS PAIN [Concomitant]
  23. HYDROXYCHLOROQUINE SULFATE [Concomitant]
  24. VITAMINS (UNSPECIFIED) [Concomitant]

REACTIONS (7)
  - Haematocrit decreased [Recovered/Resolved]
  - Feeling abnormal [Recovered/Resolved]
  - Haemoglobin decreased [Recovered/Resolved]
  - Fatigue [Recovered/Resolved]
  - Skin infection [Recovered/Resolved]
  - Urinary tract infection [Recovered/Resolved]
  - Anaemia [Recovered/Resolved]
